FAERS Safety Report 15488010 (Version 1)
Quarter: 2018Q4

REPORT INFORMATION
  Report Type: Spontaneous
  Country: FR (occurrence: FR)
  Receive Date: 20181011
  Receipt Date: 20181011
  Transmission Date: 20190205
  Serious: Yes (Death, Other)
  Sender: FDA-Public Use
  Company Number: FR-BAYER-2018-184903

PATIENT
  Age: 59 Year
  Sex: Male
  Weight: 68 kg

DRUGS (2)
  1. NEXAVAR [Suspect]
     Active Substance: SORAFENIB
     Indication: HEPATOCELLULAR CARCINOMA
     Dosage: 200 MG, BID
     Dates: start: 201712
  2. STIVARGA [Suspect]
     Active Substance: REGORAFENIB
     Indication: HEPATOCELLULAR CARCINOMA
     Dosage: 160 MG, QD
     Dates: start: 201803

REACTIONS (11)
  - Deep vein thrombosis [None]
  - Jaundice [None]
  - Renal disorder [Fatal]
  - Confusional state [Fatal]
  - Ascites [None]
  - Respiratory disorder [Fatal]
  - Hepatocellular carcinoma [None]
  - Multiple organ dysfunction syndrome [None]
  - General physical health deterioration [None]
  - Hepatic encephalopathy [Fatal]
  - Respiratory distress [None]

NARRATIVE: CASE EVENT DATE: 2018
